FAERS Safety Report 5465763-5 (Version None)
Quarter: 2007Q3

REPORT INFORMATION
  Report Type: 
  Country: None (occurrence: None)
  Receive Date: 20070924
  Receipt Date: 20070919
  Transmission Date: 20080115
  Serious: Yes (Hospitalization)
  Sender: FDA-Public Use
  Company Number: B0477402A

PATIENT
  Age: 88 Year
  Sex: Male
  Weight: 75 kg

DRUGS (13)
  1. VALTREX [Suspect]
     Indication: HERPES ZOSTER
     Dosage: 1000MG THREE TIMES PER DAY
     Route: 048
     Dates: start: 20070625, end: 20070628
  2. SYMMETREL [Concomitant]
     Dosage: 50MG PER DAY
     Route: 048
  3. ARTIST [Concomitant]
     Dosage: 10MG PER DAY
     Route: 048
  4. ALTAT [Concomitant]
     Dosage: 75MG PER DAY
     Route: 048
  5. CRESTOR [Concomitant]
     Dosage: 2.5MG PER DAY
     Route: 048
  6. SELBEX [Concomitant]
     Dosage: 150MG PER DAY
     Route: 048
  7. LAC B [Concomitant]
     Dosage: .99MG PER DAY
     Route: 048
  8. MAGNESIUM OXIDE [Concomitant]
     Dosage: 2.01MG PER DAY
     Route: 048
  9. TETRAMIDE [Concomitant]
     Dosage: 20MG PER DAY
     Route: 048
  10. DOXAZOSIN MESYLATE [Concomitant]
     Dosage: 2MG PER DAY
     Route: 048
  11. DEPAS [Concomitant]
     Dosage: 1MG PER DAY
     Route: 048
  12. ZOLPIDEM [Concomitant]
     Dosage: 10MG PER DAY
     Route: 048
  13. RHYTHMY [Concomitant]
     Route: 048

REACTIONS (5)
  - ALTERED STATE OF CONSCIOUSNESS [None]
  - BLOOD PRESSURE DECREASED [None]
  - PAIN [None]
  - RENAL FAILURE ACUTE [None]
  - SOMNOLENCE [None]
